FAERS Safety Report 6679293-6 (Version None)
Quarter: 2010Q2

REPORT INFORMATION
  Report Type: 
  Country: None (occurrence: None)
  Receive Date: 20100413
  Receipt Date: 20100407
  Transmission Date: 20101027
  Serious: Yes (Hospitalization)
  Sender: FDA-Public Use
  Company Number: JP-BAYER-200812294BYL

PATIENT
  Age: 63 Year
  Sex: Male
  Weight: 73 kg

DRUGS (4)
  1. NEXAVAR [Suspect]
     Indication: RENAL CELL CARCINOMA
     Dosage: AS USED: 800 MG  UNIT DOSE: 200 MG
     Route: 048
     Dates: start: 20080519, end: 20080604
  2. NEXAVAR [Suspect]
     Dosage: AS USED: 800 MG  UNIT DOSE: 200 MG
     Route: 048
     Dates: start: 20080617, end: 20080618
  3. NEXAVAR [Suspect]
     Dosage: AS USED: 400 MG  UNIT DOSE: 200 MG
     Route: 048
     Dates: start: 20080623, end: 20081019
  4. SUMIFERON [Concomitant]
     Indication: RENAL CELL CARCINOMA
     Dosage: AS USED: 1.5 MIU
     Route: 058
     Dates: start: 20050909, end: 20080604

REACTIONS (5)
  - ASTHENIA [None]
  - HEPATIC FUNCTION ABNORMAL [None]
  - HYPOTHERMIA [None]
  - PALMAR-PLANTAR ERYTHRODYSAESTHESIA SYNDROME [None]
  - PYREXIA [None]
